FAERS Safety Report 10824417 (Version 1)
Quarter: 2015Q1

REPORT INFORMATION
  Report Type: Spontaneous
  Country: BM (occurrence: None)
  Receive Date: 20150213
  Receipt Date: 20150213
  Transmission Date: 20150721
  Serious: Yes (Hospitalization)
  Sender: FDA-Public Use
  Company Number: 2014BI056502

PATIENT
  Age: 44 Year
  Sex: Male

DRUGS (2)
  1. TYSABRI [Suspect]
     Active Substance: NATALIZUMAB
     Indication: MULTIPLE SCLEROSIS
     Route: 042
     Dates: start: 20101213, end: 20140509
  2. GLATIRAMER [Concomitant]
     Active Substance: GLATIRAMER

REACTIONS (6)
  - Dysgeusia [None]
  - Fatigue [None]
  - Progressive multifocal leukoencephalopathy [None]
  - Immune reconstitution inflammatory syndrome [None]
  - Epilepsy [None]
  - Hypoaesthesia [None]

NARRATIVE: CASE EVENT DATE: 201406
